FAERS Safety Report 13895124 (Version 1)
Quarter: 2017Q3

REPORT INFORMATION
  Report Type: Spontaneous
  Country: US (occurrence: US)
  Receive Date: 20170817
  Receipt Date: 20170817
  Transmission Date: 20171127
  Serious: Yes (Other)
  Sender: FDA-Public Use
  Company Number: None

PATIENT
  Age: 4 Year
  Sex: Female
  Weight: 10.35 kg

DRUGS (11)
  1. NEXIUM [Concomitant]
     Active Substance: ESOMEPRAZOLE MAGNESIUM
  2. IBUPROPHEN [Concomitant]
     Active Substance: IBUPROFEN
  3. ZYRTEC [Concomitant]
     Active Substance: CETIRIZINE HYDROCHLORIDE
  4. TRIMCINOLONE [Concomitant]
  5. SINGULAIR [Concomitant]
     Active Substance: MONTELUKAST SODIUM
  6. KEPPRA [Concomitant]
     Active Substance: LEVETIRACETAM
  7. MELATONIN [Concomitant]
     Active Substance: MELATONIN
  8. BACLOFEN. [Concomitant]
     Active Substance: BACLOFEN
  9. SENNA [Suspect]
     Active Substance: SENNA LEAF\SENNOSIDES\SENNOSIDES A AND B
     Indication: CONSTIPATION
     Dosage: ?          QUANTITY:630 TABLET(S);OTHER ROUTE:SMASHED AND GIVEN IN G-TUBE?
     Dates: start: 20170808, end: 20170816
  10. CLOTRIMAZOLE. [Concomitant]
     Active Substance: CLOTRIMAZOLE
  11. FLINSTONE COMPLETE [Concomitant]

REACTIONS (3)
  - Skin exfoliation [None]
  - Rash erythematous [None]
  - Bacterial infection [None]

NARRATIVE: CASE EVENT DATE: 20170812
